FAERS Safety Report 9503901 (Version 1)
Quarter: 2013Q3

REPORT INFORMATION
  Report Type: Spontaneous
  Country: US (occurrence: None)
  Receive Date: 20130905
  Receipt Date: 20130905
  Transmission Date: 20140515
  Serious: Yes (Other)
  Sender: FDA-Public Use
  Company Number: None

PATIENT
  Age: 51 Year
  Sex: Female
  Weight: 61.24 kg

DRUGS (1)
  1. DIVALPROEX ER [Suspect]
     Indication: CONVULSION
     Dosage: 3 TABS TWICE DAILY TAKEN BY MOUTH
     Route: 048

REACTIONS (2)
  - Tooth discolouration [None]
  - Tooth disorder [None]
